FAERS Safety Report 8795401 (Version 2)
Quarter: 2013Q1

REPORT INFORMATION
  Report Type: Spontaneous
  Country: CN (occurrence: CN)
  Receive Date: 20120917
  Receipt Date: 20130315
  Transmission Date: 20140127
  Serious: Yes (Other)
  Sender: FDA-Public Use
  Company Number: CN-JHP PHARMACEUTICALS, LLC-JHP201200466

PATIENT
  Age: 24 Year
  Sex: Female

DRUGS (1)
  1. KETALAR [Suspect]
     Indication: DRUG ABUSE

REACTIONS (5)
  - Liver function test abnormal [Unknown]
  - Urinary tract disorder [Unknown]
  - Reduced bladder capacity [Unknown]
  - Cystitis noninfective [Unknown]
  - Hypertonic bladder [Unknown]
